FAERS Safety Report 8956492 (Version 4)
Quarter: 2013Q1

REPORT INFORMATION
  Report Type: Spontaneous
  Country: US (occurrence: US)
  Receive Date: 20121210
  Receipt Date: 20130116
  Transmission Date: 20140127
  Serious: Yes (Other)
  Sender: FDA-Public Use
  Company Number: US-PFIZER INC-2012310092

PATIENT
  Age: 53 Year
  Sex: Male
  Weight: 67.12 kg

DRUGS (4)
  1. CHANTIX [Suspect]
     Indication: SMOKING CESSATION THERAPY
     Dosage: 0.5 MG, 1X/DAY
     Route: 048
     Dates: start: 2010, end: 2010
  2. FEXOFENADINE [Concomitant]
     Indication: HYPERSENSITIVITY
     Dosage: 180 MG, UNK
  3. KEFLEX [Concomitant]
     Dosage: 500 MG, UNK
  4. ALTABAX [Concomitant]

REACTIONS (4)
  - Chest pain [Recovered/Resolved]
  - Vascular occlusion [Unknown]
  - Aggression [Unknown]
  - Anxiety [Unknown]
